FAERS Safety Report 5658794-3 (Version None)
Quarter: 2008Q1

REPORT INFORMATION
  Report Type: 
  Country: None (occurrence: None)
  Receive Date: 20080310
  Receipt Date: 20070618
  Transmission Date: 20080703
  Serious: No
  Sender: FDA-Public Use
  Company Number: US-BAYER-200711129BCC

PATIENT
  Age: 80 Year
  Sex: Male
  Weight: 82 kg

DRUGS (7)
  1. ALEVE [Suspect]
     Indication: ARTHRITIS
     Dosage: TOTAL DAILY DOSE: 440 MG  UNIT DOSE: 220 MG
     Route: 048
  2. ASPIRIN [Suspect]
     Indication: DRUG USE FOR UNKNOWN INDICATION
     Route: 048
  3. OCUVITE [Concomitant]
  4. MULTI-VITAMIN [Concomitant]
  5. CITALOPRAM HYDROBROMIDE [Concomitant]
     Route: 048
  6. NORVASC [Concomitant]
     Route: 048
  7. EQUATE STOOL SOFTENER [Concomitant]

REACTIONS (1)
  - HYPERTENSION [None]
